FAERS Safety Report 14066648 (Version 1)
Quarter: 2017Q4

REPORT INFORMATION
  Report Type: Spontaneous
  Country: AX (occurrence: AX)
  Receive Date: 20171006
  Receipt Date: 20171006
  Transmission Date: 20180321
  Serious: Yes (Life-Threatening)
  Sender: FDA-Public Use
  Company Number: None

PATIENT
  Age: 52 Year
  Sex: Male
  Weight: 85.5 kg

DRUGS (4)
  1. DILT-XR [Suspect]
     Active Substance: DILTIAZEM
     Indication: ATRIAL FIBRILLATION
     Route: 048
     Dates: start: 20170921, end: 20170928
  2. DILT-XR [Suspect]
     Active Substance: DILTIAZEM
     Indication: HYPERTENSION
     Route: 048
     Dates: start: 20170921, end: 20170928
  3. DILT-XR [Suspect]
     Active Substance: DILTIAZEM
     Indication: HEART RATE INCREASED
     Route: 048
     Dates: start: 20170921, end: 20170928
  4. DILTIAZEM ER [Concomitant]
     Active Substance: DILTIAZEM

REACTIONS (4)
  - Heart rate increased [None]
  - Blood pressure increased [None]
  - Angina pectoris [None]
  - Product substitution issue [None]

NARRATIVE: CASE EVENT DATE: 20170921
